FAERS Safety Report 8368862-3 (Version None)
Quarter: 2012Q2

REPORT INFORMATION
  Report Type: 
  Country: None (occurrence: None)
  Receive Date: 20120516
  Receipt Date: 20120430
  Transmission Date: 20120825
  Serious: Yes (Hospitalization)
  Sender: FDA-Public Use
  Company Number: JPI-P-021225

PATIENT
  Age: 36 Year
  Sex: Female
  Weight: 122.0176 kg

DRUGS (5)
  1. XYREM [Suspect]
     Indication: SLEEP DISORDER
     Dosage: 4.5 GM (2.25 GM, 2 IN 1 D), ORAL (TITRATING DOSE), ORAL 9 GM (4.5 GM, 2 IN 1 D), ORAL 18 GM (9GM, 2
     Route: 048
     Dates: start: 20120120, end: 20120101
  2. XYREM [Suspect]
     Indication: CATAPLEXY
     Dosage: 4.5 GM (2.25 GM, 2 IN 1 D), ORAL (TITRATING DOSE), ORAL 9 GM (4.5 GM, 2 IN 1 D), ORAL 18 GM (9GM, 2
     Route: 048
     Dates: start: 20120120, end: 20120101
  3. XYREM [Suspect]
     Indication: SLEEP DISORDER
     Dosage: 4.5 GM (2.25 GM, 2 IN 1 D), ORAL (TITRATING DOSE), ORAL 9 GM (4.5 GM, 2 IN 1 D), ORAL 18 GM (9GM, 2
     Route: 048
     Dates: start: 20101021
  4. XYREM [Suspect]
     Indication: CATAPLEXY
     Dosage: 4.5 GM (2.25 GM, 2 IN 1 D), ORAL (TITRATING DOSE), ORAL 9 GM (4.5 GM, 2 IN 1 D), ORAL 18 GM (9GM, 2
     Route: 048
     Dates: start: 20101021
  5. PREGABALIN [Concomitant]

REACTIONS (8)
  - FIBROMYALGIA [None]
  - DIZZINESS [None]
  - HEADACHE [None]
  - APHONIA [None]
  - NAUSEA [None]
  - DRY THROAT [None]
  - DYSPHAGIA [None]
  - CONDITION AGGRAVATED [None]
